FAERS Safety Report 4622073-3 (Version None)
Quarter: 2005Q2

REPORT INFORMATION
  Report Type: 
  Country: None (occurrence: None)
  Receive Date: 20050329
  Receipt Date: 20050324
  Transmission Date: 20051028
  Serious: Yes (Other)
  Sender: FDA-Public Use
  Company Number: 004468

PATIENT
  Sex: Female

DRUGS (6)
  1. MEDROXYPROGESTERONE ACETATE [Suspect]
     Dates: start: 19930101, end: 20000101
  2. MEDROXYPROGESTERONE ACETATE [Suspect]
     Dates: start: 19930101, end: 20000101
  3. CYCRIN [Suspect]
     Dates: start: 19930101, end: 20000101
  4. PROVERA [Suspect]
     Dates: start: 19930101, end: 20000101
  5. ESTRATEST [Suspect]
     Dates: start: 19930101, end: 20000101
  6. ESTRACE [Suspect]
     Dates: start: 19930101, end: 20000101

REACTIONS (1)
  - BREAST CANCER FEMALE [None]
